FAERS Safety Report 16107652 (Version 4)
Quarter: 2019Q2

REPORT INFORMATION
  Report Type: Spontaneous
  Country: RO (occurrence: RO)
  Receive Date: 20190322
  Receipt Date: 20190404
  Transmission Date: 20190711
  Serious: Yes (Hospitalization, Other)
  Sender: FDA-Public Use
  Company Number: RO-PFIZER INC-2019121361

PATIENT
  Age: 7 Day
  Sex: Female

DRUGS (17)
  1. DEXAMETHASONE. [Suspect]
     Active Substance: DEXAMETHASONE
     Dosage: UNK
  2. AMIODARONE [Suspect]
     Active Substance: AMIODARONE
     Dosage: UNK
  3. ASPATOFORT [Suspect]
     Active Substance: PYRIDOXINE HYDROCHLORIDE\SODIUM ASPARTATE
     Dosage: UNK
  4. DIFLUCAN [Suspect]
     Active Substance: FLUCONAZOLE
     Dosage: UNK
  5. COLISTIN [Suspect]
     Active Substance: COLISTIN
     Dosage: UNK
  6. CONTROLOC [Suspect]
     Active Substance: PANTOPRAZOLE SODIUM
     Dosage: UNK
  7. TAZOCIN [Suspect]
     Active Substance: PIPERACILLIN SODIUM\TAZOBACTAM SODIUM
     Dosage: UNK
  8. VANCOMYCIN HCL [Suspect]
     Active Substance: VANCOMYCIN HYDROCHLORIDE
     Dosage: UNK
  9. BIOTICS [Suspect]
     Active Substance: DIETARY SUPPLEMENT\PROBIOTICS
     Dosage: UNK
  10. TIENAM [Suspect]
     Active Substance: CILASTATIN SODIUM\IMIPENEM
     Dosage: UNK
  11. FUROSEMID [Suspect]
     Active Substance: FUROSEMIDE
     Dosage: UNK
  12. TARGOCID [Suspect]
     Active Substance: TEICOPLANIN
     Dosage: UNK
  13. MERONEM [Suspect]
     Active Substance: MEROPENEM
     Dosage: UNK
  14. SPIRONOLACTONE. [Suspect]
     Active Substance: SPIRONOLACTONE
     Dosage: UNK
  15. HUMAGLOBIN [Suspect]
     Active Substance: HUMAN IMMUNOGLOBULIN G
     Dosage: UNK
  16. METRONIDAZOLE. [Suspect]
     Active Substance: METRONIDAZOLE
     Dosage: UNK
  17. MOTILIUM [Suspect]
     Active Substance: DOMPERIDONE
     Dosage: UNK

REACTIONS (1)
  - Generalised tonic-clonic seizure [Unknown]
